FAERS Safety Report 9690701 (Version 1)
Quarter: 2013Q4

REPORT INFORMATION
  Report Type: Spontaneous
  Country: US (occurrence: None)
  Receive Date: 20131114
  Receipt Date: 20131114
  Transmission Date: 20140711
  Serious: No
  Sender: FDA-Public Use
  Company Number: None

PATIENT
  Sex: 0

DRUGS (1)
  1. CEPHALEXIN [Suspect]
     Dates: start: 20130711

REACTIONS (4)
  - Arthralgia [None]
  - Gait disturbance [None]
  - Movement disorder [None]
  - Drug hypersensitivity [None]
